FAERS Safety Report 7459757-8 (Version None)
Quarter: 2011Q2

REPORT INFORMATION
  Report Type: 
  Country: None (occurrence: None)
  Receive Date: 20110504
  Receipt Date: 20110504
  Transmission Date: 20111010
  Serious: No
  Sender: FDA-Public Use
  Company Number: None

PATIENT
  Sex: Male

DRUGS (1)
  1. CLOZAPINE [Suspect]
     Dosage: 100MG HS PO
     Route: 048
     Dates: start: 20100305, end: 20110503

REACTIONS (2)
  - GAIT DISTURBANCE [None]
  - JOINT INSTABILITY [None]
